FAERS Safety Report 9197442 (Version 1)
Quarter: 2013Q1

REPORT INFORMATION
  Report Type: Spontaneous
  Country: US (occurrence: US)
  Receive Date: 20130328
  Receipt Date: 20130328
  Transmission Date: 20140127
  Serious: Yes (Other)
  Sender: FDA-Public Use
  Company Number: US-FRI-1000043581

PATIENT
  Sex: Male

DRUGS (1)
  1. TEFLARO [Suspect]

REACTIONS (2)
  - Nephrotic syndrome [Unknown]
  - Renal failure [Unknown]
